FAERS Safety Report 5723796-5 (Version None)
Quarter: 2008Q2

REPORT INFORMATION
  Report Type: 
  Country: None (occurrence: None)
  Receive Date: 20080429
  Receipt Date: 20080429
  Transmission Date: 20081010
  Serious: Yes (Hospitalization, Disabling)
  Sender: FDA-Public Use
  Company Number: None

PATIENT
  Sex: Male
  Weight: 73.4827 kg

DRUGS (4)
  1. INDOMETHACIN [Suspect]
     Indication: GOUT
     Dosage: 50MG. THREE TIMES A DAY;  50MG ONCE A DAY
     Dates: start: 20080303, end: 20080322
  2. INDOMETHACIN [Suspect]
     Indication: RHEUMATOID ARTHRITIS
     Dosage: 50MG. THREE TIMES A DAY;  50MG ONCE A DAY
     Dates: start: 20080303, end: 20080322
  3. INDOMETHACIN [Suspect]
     Indication: GOUT
     Dosage: 50MG. THREE TIMES A DAY;  50MG ONCE A DAY
     Dates: start: 20080322, end: 20080330
  4. INDOMETHACIN [Suspect]
     Indication: RHEUMATOID ARTHRITIS
     Dosage: 50MG. THREE TIMES A DAY;  50MG ONCE A DAY
     Dates: start: 20080322, end: 20080330

REACTIONS (1)
  - ILL-DEFINED DISORDER [None]
